FAERS Safety Report 13402655 (Version 1)
Quarter: 2017Q2

REPORT INFORMATION
  Report Type: Spontaneous
  Country: US (occurrence: US)
  Receive Date: 20170404
  Receipt Date: 20170404
  Transmission Date: 20170830
  Serious: Yes (Hospitalization)
  Sender: FDA-Public Use
  Company Number: US-ACTELION-A-US2017-151739

PATIENT
  Age: 72 Year
  Sex: Female

DRUGS (7)
  1. TYVASO [Concomitant]
     Active Substance: TREPROSTINIL
     Dosage: 0.6 MG/ML, UNK
  2. WARFARIN [Concomitant]
     Active Substance: WARFARIN
     Dosage: 7.5 MG, UNK
  3. LISINOPRIL. [Concomitant]
     Active Substance: LISINOPRIL
     Dosage: 10 MG, UNK
  4. OPSUMIT [Suspect]
     Active Substance: MACITENTAN
     Indication: PULMONARY ARTERIAL HYPERTENSION
     Dosage: 10 MG, QD
     Route: 048
     Dates: start: 20170227
  5. DEMADEX [Concomitant]
     Active Substance: TORSEMIDE
     Dosage: 20 MG, UNK
  6. SILDENAFIL. [Concomitant]
     Active Substance: SILDENAFIL
     Indication: PULMONARY ARTERIAL HYPERTENSION
     Dosage: 20 MG, UNK
  7. CEPHALEXIN. [Concomitant]
     Active Substance: CEPHALEXIN
     Dosage: 500 MG, UNK

REACTIONS (1)
  - Pulmonary arterial hypertension [Not Recovered/Not Resolved]
